FAERS Safety Report 19258193 (Version 1)
Quarter: 2021Q2

REPORT INFORMATION
  Report Type: Spontaneous
  Country: US (occurrence: US)
  Receive Date: 20210514
  Receipt Date: 20210514
  Transmission Date: 20210717
  Serious: Yes (Other)
  Sender: FDA-Public Use
  Company Number: US-GLAXOSMITHKLINE-US2021GSK103180

PATIENT
  Sex: Male

DRUGS (5)
  1. ZANTAC [Suspect]
     Active Substance: RANITIDINE HYDROCHLORIDE
     Indication: GASTRIC ULCER
     Dosage: UNK UNK, QD
     Route: 065
     Dates: start: 198803, end: 199308
  2. ZANTAC [Suspect]
     Active Substance: RANITIDINE HYDROCHLORIDE
     Indication: GASTRIC ULCER
     Dosage: OCCASIONAL|UNKNOWN AT THIS TIME|PRESCRIPTION
     Route: 065
     Dates: start: 198803, end: 199308
  3. RANITIDINE. [Suspect]
     Active Substance: RANITIDINE
     Indication: GASTRIC ULCER
     Dosage: 75 MG
     Route: 065
     Dates: start: 198803, end: 199308
  4. ZANTAC [Suspect]
     Active Substance: RANITIDINE HYDROCHLORIDE
     Indication: GASTRIC ULCER
     Dosage: OCCASIONAL|UNKNOWN AT THIS TIME|PRESCRIPTION
     Route: 065
     Dates: start: 198803, end: 199308
  5. RANITIDINE. [Suspect]
     Active Substance: RANITIDINE
     Indication: GASTRIC ULCER
     Dosage: 75 MG
     Route: 065
     Dates: start: 198803, end: 199308

REACTIONS (1)
  - Gastric cancer [Unknown]
